FAERS Safety Report 4374420-8 (Version None)
Quarter: 2004Q2

REPORT INFORMATION
  Report Type: 
  Country: None (occurrence: None)
  Receive Date: 20040608
  Receipt Date: 20040608
  Transmission Date: 20050107
  Serious: Yes (Other)
  Sender: FDA-Public Use
  Company Number: None

PATIENT
  Age: 23 Year
  Sex: Female
  Weight: 63.5036 kg

DRUGS (2)
  1. TUBERSOL [Suspect]
     Indication: TUBERCULIN TEST
     Dosage: 0.1ML INTRADERMAL
     Route: 023
     Dates: start: 20040517
  2. UNSPECIFIED SEIZURE MEDICATION [Concomitant]

REACTIONS (5)
  - HYPERSENSITIVITY [None]
  - INJECTION SITE PRURITUS [None]
  - INJECTION SITE RASH [None]
  - PAIN [None]
  - RASH PRURITIC [None]
